FAERS Safety Report 7335405 (Version 4)
Quarter: 2014Q1

REPORT INFORMATION
  Report Type: Spontaneous
  Country: US (occurrence: US)
  Receive Date: 20100329
  Receipt Date: 20140224
  Transmission Date: 20141002
  Serious: Yes (Hospitalization, Other)
  Sender: FDA-Public Use
  Company Number: US-ROCHE-675238

PATIENT
  Age: 17 Year
  Sex: Male
  Weight: 82.6 kg

DRUGS (2)
  1. ACCUTANE [Suspect]
     Indication: ACNE
     Route: 065
     Dates: start: 199909, end: 199912
  2. ACCUTANE [Suspect]
     Route: 065
     Dates: start: 200011, end: 200101

REACTIONS (8)
  - Inflammatory bowel disease [Unknown]
  - Crohn^s disease [Unknown]
  - Cholangitis sclerosing [Unknown]
  - Colitis ulcerative [Unknown]
  - Colitis [Unknown]
  - Depression [Unknown]
  - Chapped lips [Unknown]
  - Dry skin [Unknown]
